FAERS Safety Report 23188363 (Version 1)
Quarter: 2023Q4

REPORT INFORMATION
  Report Type: Spontaneous
  Country: US (occurrence: US)
  Receive Date: 20231115
  Receipt Date: 20231115
  Transmission Date: 20240109
  Serious: No
  Sender: FDA-Public Use
  Company Number: US-PFIZER INC-PV202300185956

PATIENT
  Age: 65 Year
  Sex: Female

DRUGS (1)
  1. METHYLPREDNISOLONE ACETATE [Suspect]
     Active Substance: METHYLPREDNISOLONE ACETATE
     Indication: Carpal tunnel syndrome
     Dosage: UNK
     Dates: start: 2018

REACTIONS (3)
  - Eye swelling [Unknown]
  - Peripheral swelling [Unknown]
  - Off label use [Unknown]

NARRATIVE: CASE EVENT DATE: 20180101
